FAERS Safety Report 6432435-X (Version None)
Quarter: 2009Q4

REPORT INFORMATION
  Report Type: 
  Country: None (occurrence: None)
  Receive Date: 20091109
  Receipt Date: 20091009
  Transmission Date: 20100525
  Serious: No
  Sender: FDA-Public Use
  Company Number: US-BAYER-200936102NA

PATIENT
  Age: 28 Year
  Sex: Female

DRUGS (2)
  1. MIRENA [Suspect]
     Indication: CONTRACEPTION
     Route: 015
     Dates: start: 20090813, end: 20091009
  2. MIRENA [Suspect]
     Dosage: CONTINUOUS DELIVERY
     Route: 015
     Dates: start: 20091009

REACTIONS (2)
  - MEDICAL DEVICE COMPLICATION [None]
  - PROCEDURAL PAIN [None]
